FAERS Safety Report 4935202-9 (Version None)
Quarter: 2006Q1

REPORT INFORMATION
  Report Type: 
  Country: None (occurrence: None)
  Receive Date: 20060302
  Receipt Date: 20060215
  Transmission Date: 20060701
  Serious: Yes (Hospitalization, Other)
  Sender: FDA-Public Use
  Company Number: US200602003330

PATIENT
  Sex: Female

DRUGS (2)
  1. FORTEO [Suspect]
     Indication: OSTEOPOROSIS
     Dates: start: 20040201
  2. FORTEO [Concomitant]

REACTIONS (4)
  - APHAGIA [None]
  - INFLUENZA [None]
  - PAIN [None]
  - PNEUMONIA [None]
